FAERS Safety Report 7734544-1 (Version None)
Quarter: 2011Q3

REPORT INFORMATION
  Report Type: 
  Country: None (occurrence: None)
  Receive Date: 20110907
  Receipt Date: 20110826
  Transmission Date: 20111222
  Serious: Yes (Other)
  Sender: FDA-Public Use
  Company Number: US-GLAXOSMITHKLINE-B0705225A

PATIENT
  Age: 64 Year
  Sex: Male
  Weight: 110.9 kg

DRUGS (4)
  1. DIGOXIN [Concomitant]
  2. INSULIN [Concomitant]
  3. LOTENSIN [Concomitant]
  4. AVANDIA [Suspect]
     Indication: DIABETES MELLITUS
     Dosage: 8MG PER DAY
     Route: 048
     Dates: start: 20050629, end: 20110106

REACTIONS (4)
  - PAIN [None]
  - DYSPNOEA [None]
  - CARDIAC FAILURE CONGESTIVE [None]
  - CATHETERISATION CARDIAC [None]
